FAERS Safety Report 7091386-0 (Version None)
Quarter: 2010Q4

REPORT INFORMATION
  Report Type: 
  Country: None (occurrence: None)
  Receive Date: 20101109
  Receipt Date: 20101104
  Transmission Date: 20110411
  Serious: Yes (Death)
  Sender: FDA-Public Use
  Company Number: A0890901A

PATIENT
  Age: 64 Year
  Sex: Male

DRUGS (3)
  1. HYCAMTIN [Suspect]
     Dosage: 3MG FIVE TIMES PER WEEK
     Route: 048
     Dates: start: 20100107, end: 20100831
  2. LOVENOX [Concomitant]
  3. ENOXAPARIN SODIUM [Concomitant]

REACTIONS (1)
  - DEATH [None]
